FAERS Safety Report 24915114 (Version 1)
Quarter: 2025Q1

REPORT INFORMATION
  Report Type: Spontaneous
  Country: US (occurrence: US)
  Receive Date: 20250203
  Receipt Date: 20250203
  Transmission Date: 20250408
  Serious: No
  Sender: AMGEN
  Company Number: US-AMGEN-USASP2025014537

PATIENT

DRUGS (1)
  1. TEPEZZA [Suspect]
     Active Substance: TEPROTUMUMAB-TRBW
     Indication: Endocrine ophthalmopathy
     Route: 040

REACTIONS (11)
  - Hair texture abnormal [Recovered/Resolved]
  - Genital dryness [Recovered/Resolved]
  - Eye disorder [Not Recovered/Not Resolved]
  - Therapeutic product effect incomplete [Unknown]
  - Hypoacusis [Recovered/Resolved]
  - Dry skin [Recovered/Resolved]
  - Alopecia [Recovered/Resolved]
  - Diarrhoea [Recovered/Resolved]
  - Muscle spasms [Recovered/Resolved]
  - Onychoclasis [Recovered/Resolved]
  - Nail disorder [Recovered/Resolved]
